FAERS Safety Report 5290591-3 (Version None)
Quarter: 2007Q2

REPORT INFORMATION
  Report Type: 
  Country: None (occurrence: None)
  Receive Date: 20070405
  Receipt Date: 20070405
  Transmission Date: 20071010
  Serious: No
  Sender: FDA-Public Use
  Company Number: None

PATIENT
  Sex: Female
  Weight: 42 kg

DRUGS (13)
  1. HYDROMORPHONE HCL [Suspect]
     Indication: PAIN
     Dosage: 0.5 - 1MG IV QH PRN
     Route: 042
  2. LANSOPRAZOLE [Concomitant]
  3. DOCUSATE [Concomitant]
  4. SENNA [Concomitant]
  5. LORAZEPAM [Concomitant]
  6. VINCRISTINE [Concomitant]
  7. RITUXIMAB [Concomitant]
  8. CYCLOPHOSPHAMIDE [Concomitant]
  9. APAP TAB [Concomitant]
  10. VENLAFAXINE HCL [Concomitant]
  11. METOCLOPRAMIDE [Concomitant]
  12. ONDANSETRON [Concomitant]
  13. PROMETHAZINE [Concomitant]

REACTIONS (2)
  - ILEUS [None]
  - REFUSAL OF TREATMENT BY PATIENT [None]
